FAERS Safety Report 14950213 (Version 1)
Quarter: 2018Q2

REPORT INFORMATION
  Report Type: Spontaneous
  Country: JP (occurrence: JP)
  Receive Date: 20180530
  Receipt Date: 20180530
  Transmission Date: 20180711
  Serious: Yes (Death, Hospitalization)
  Sender: FDA-Public Use
  Company Number: JP-ACCORD-052794

PATIENT
  Age: 65 Year
  Sex: Male

DRUGS (5)
  1. DENOSUMAB [Suspect]
     Active Substance: DENOSUMAB
     Indication: METASTASES TO BONE
  2. NAFAMOSTAT [Suspect]
     Active Substance: NAFAMOSTAT
     Indication: METASTATIC NEOPLASM
     Route: 042
  3. FLUOROURACIL. [Suspect]
     Active Substance: FLUOROURACIL
     Indication: METASTATIC NEOPLASM
     Dosage: 80% OF THE REGULAR DOSE ?REPEATED EVERY 2 WEEKS?ALSO, 5 FU INFUSION 2,400 MG/M^2 OVER 46 H
     Route: 040
  4. FOLINIC ACID [Suspect]
     Active Substance: LEUCOVORIN
     Indication: METASTATIC NEOPLASM
     Dosage: REPEATED EVERY 2 WEEKS?80% OF THE REGULAR DOSE
  5. OXALIPLATIN. [Suspect]
     Active Substance: OXALIPLATIN
     Indication: METASTATIC NEOPLASM
     Dosage: REPEATED EVERY 2 WEEKS?80% OF THE REGULAR DOSE

REACTIONS (2)
  - Decreased appetite [Unknown]
  - Diarrhoea [Unknown]
